FAERS Safety Report 16654261 (Version 1)
Quarter: 2019Q3

REPORT INFORMATION
  Report Type: Spontaneous
  Country: US (occurrence: US)
  Receive Date: 20190731
  Receipt Date: 20190731
  Transmission Date: 20191004
  Serious: Yes (Hospitalization)
  Sender: FDA-Public Use
  Company Number: PHEH2019US031386

PATIENT

DRUGS (6)
  1. LYRICA [Suspect]
     Active Substance: PREGABALIN
     Indication: SICKLE CELL ANAEMIA WITH CRISIS
     Route: 065
  2. KETAMINE [Suspect]
     Active Substance: KETAMINE
     Indication: SICKLE CELL ANAEMIA WITH CRISIS
     Route: 065
  3. FLEXERIL [Suspect]
     Active Substance: CYCLOBENZAPRINE HYDROCHLORIDE
     Indication: SICKLE CELL ANAEMIA WITH CRISIS
     Route: 065
  4. LIDOCAINE. [Suspect]
     Active Substance: LIDOCAINE
     Indication: SICKLE CELL ANAEMIA WITH CRISIS
     Dosage: INFUSION
     Route: 065
  5. GABAPENTIN. [Suspect]
     Active Substance: GABAPENTIN
     Indication: SICKLE CELL ANAEMIA WITH CRISIS
     Route: 065
  6. LIDOCAINE. [Suspect]
     Active Substance: LIDOCAINE
     Dosage: PATCH
     Route: 065

REACTIONS (1)
  - Drug ineffective [Unknown]
